FAERS Safety Report 8710188 (Version 2)
Quarter: 2013Q2

REPORT INFORMATION
  Report Type: Spontaneous
  Country: US (occurrence: US)
  Receive Date: 20120806
  Receipt Date: 20130520
  Transmission Date: 20140414
  Serious: No
  Sender: FDA-Public Use
  Company Number: US-009507513-1205USA04282

PATIENT
  Age: 36 Month
  Sex: 0

DRUGS (3)
  1. SINGULAIR [Suspect]
     Dosage: 10 MG, UNK
     Route: 048
  2. NASONEX [Concomitant]
  3. ZYRTEC [Concomitant]

REACTIONS (2)
  - Overdose [Unknown]
  - Irritability [Recovering/Resolving]
